FAERS Safety Report 4665531-8 (Version None)
Quarter: 2005Q2

REPORT INFORMATION
  Report Type: 
  Country: None (occurrence: None)
  Receive Date: 20050518
  Receipt Date: 20050518
  Transmission Date: 20051028
  Serious: Yes (Other)
  Sender: FDA-Public Use
  Company Number: None

PATIENT
  Sex: Female
  Weight: 63.5036 kg

DRUGS (2)
  1. LEVAQUIN [Suspect]
     Indication: LOWER RESPIRATORY TRACT INFECTION
     Dosage: 500  1 ORAL
     Route: 048
     Dates: start: 20040927, end: 20041008
  2. LEVAQUIN [Suspect]
     Indication: LOWER RESPIRATORY TRACT INFECTION
     Dosage: 500  1 ORAL
     Route: 048
     Dates: start: 20050214, end: 20050221

REACTIONS (2)
  - NEUROPATHY [None]
  - TENDONITIS [None]
